FAERS Safety Report 9355862 (Version 2)
Quarter: 2013Q2

REPORT INFORMATION
  Report Type: Report from Study
  Country: JP (occurrence: JP)
  Receive Date: 20130619
  Receipt Date: 20130627
  Transmission Date: 20140414
  Serious: Yes (Hospitalization)
  Sender: FDA-Public Use
  Company Number: JP-ROCHE-1224286

PATIENT
  Age: 92 Year
  Sex: Female

DRUGS (7)
  1. METHOXY POLYETHYLENE GLYCOL-EPOETIN BETA [Suspect]
     Indication: NEPHROGENIC ANAEMIA
     Route: 058
     Dates: start: 20121114, end: 20130115
  2. CEFTRIAXONE [Suspect]
     Indication: URINARY TRACT INFECTION
     Route: 042
  3. LASIX [Concomitant]
     Route: 048
  4. SALOBEL [Concomitant]
     Route: 048
  5. FLOMOX [Concomitant]
     Dosage: AT THE THERMACOGENESIS OR THE CLOUDINESS OF URINE
     Route: 048
     Dates: start: 20121114, end: 20121120
  6. MUCOSTA [Concomitant]
     Indication: PROPHYLAXIS
     Dosage: FLOMOX AND TAKING SIMULTANEOUSLY
     Route: 048
     Dates: start: 20121114, end: 20121120
  7. ARGAMATE [Concomitant]
     Indication: PROPHYLAXIS
     Route: 048
     Dates: start: 20121204

REACTIONS (3)
  - Urinary tract infection [Recovering/Resolving]
  - Renal impairment [Recovering/Resolving]
  - Gastrointestinal haemorrhage [Recovering/Resolving]
